FAERS Safety Report 6458752-5 (Version None)
Quarter: 2009Q4

REPORT INFORMATION
  Report Type: 
  Country: None (occurrence: None)
  Receive Date: 20091120
  Receipt Date: 20091105
  Transmission Date: 20100525
  Serious: Yes (Other)
  Sender: FDA-Public Use
  Company Number: AUR-APL-2009-01195

PATIENT
  Age: 30 Year
  Sex: Male

DRUGS (2)
  1. RIBAVIRIN [Suspect]
     Indication: HEPATITIS C
  2. INTERFERON ALFA [Suspect]
     Indication: HEPATITIS C

REACTIONS (4)
  - ACUTE PSYCHOSIS [None]
  - HALLUCINATION, AUDITORY [None]
  - PERSECUTORY DELUSION [None]
  - SUICIDE ATTEMPT [None]
